FAERS Safety Report 24846806 (Version 2)
Quarter: 2025Q1

REPORT INFORMATION
  Report Type: Spontaneous
  Country: US (occurrence: US)
  Receive Date: 20250115
  Receipt Date: 20250310
  Transmission Date: 20250409
  Serious: No
  Sender: BIOMARIN
  Company Number: US-BIOMARINAP-US-2025-162975

PATIENT

DRUGS (1)
  1. VOXZOGO [Suspect]
     Active Substance: VOSORITIDE
     Indication: Osteochondrodysplasia
     Dosage: UNK, QD
     Route: 058
     Dates: start: 202209

REACTIONS (1)
  - Drug ineffective [Unknown]

NARRATIVE: CASE EVENT DATE: 20240101
